FAERS Safety Report 4523084-9 (Version None)
Quarter: 2004Q4

REPORT INFORMATION
  Report Type: 
  Country: None (occurrence: None)
  Receive Date: 20041208
  Receipt Date: 20041129
  Transmission Date: 20050328
  Serious: Yes (Death, Life-Threatening, Hospitalization)
  Sender: FDA-Public Use
  Company Number: 2004-11-1594

PATIENT
  Age: 66 Year
  Sex: Male

DRUGS (4)
  1. TEMODAL [Suspect]
     Indication: GLIOBLASTOMA MULTIFORME
     Dosage: 150 MG ORAL
     Route: 048
     Dates: start: 20030605, end: 20030626
  2. RADIATION THERAPY [Suspect]
     Indication: GLIOBLASTOMA MULTIFORME
     Dosage: 28 GY TOTAL X-RAY THERAP
     Dates: start: 20030605, end: 20030627
  3. DEXAMETHASONE [Concomitant]
  4. VINORELBINE TARTRATE [Concomitant]

REACTIONS (2)
  - PNEUMONIA [None]
  - SEPSIS [None]
